FAERS Safety Report 22669877 (Version 2)
Quarter: 2025Q4

REPORT INFORMATION
  Report Type: Spontaneous
  Country: EU (occurrence: None)
  Receive Date: 20230704
  Receipt Date: 20251022
  Transmission Date: 20260118
  Serious: Yes (Other)
  Sender: ORGANON
  Company Number: EU-ORGANON-O2306ESP003442

PATIENT
  Sex: Female

DRUGS (1)
  1. ETONOGESTREL [Suspect]
     Active Substance: ETONOGESTREL
     Dosage: 1 IMPLANT
     Dates: start: 20210427, end: 20230627

REACTIONS (4)
  - Device dislocation [Recovered/Resolved]
  - Pain in extremity [Recovering/Resolving]
  - Hypoaesthesia [Recovering/Resolving]
  - Encapsulation reaction [Unknown]

NARRATIVE: CASE EVENT DATE: 20230613
